FAERS Safety Report 10588142 (Version 1)
Quarter: 2014Q4

REPORT INFORMATION
  Report Type: Spontaneous
  Country: SK (occurrence: SK)
  Receive Date: 20141117
  Receipt Date: 20141117
  Transmission Date: 20150529
  Serious: Yes (Hospitalization)
  Sender: FDA-Public Use
  Company Number: PHHY2014SK145385

PATIENT
  Age: 14 Year
  Sex: Female

DRUGS (1)
  1. IBUPROFEN. [Suspect]
     Active Substance: IBUPROFEN
     Indication: PRODUCT USED FOR UNKNOWN INDICATION
     Dosage: 384 MG/KG, ONCE/SINGLE
     Route: 048

REACTIONS (4)
  - Somnolence [Unknown]
  - Suicide attempt [Unknown]
  - Hepatic enzyme increased [Unknown]
  - Vomiting [Unknown]
